FAERS Safety Report 5067650-3 (Version None)
Quarter: 2006Q3

REPORT INFORMATION
  Report Type: 
  Country: None (occurrence: None)
  Receive Date: 20060713
  Receipt Date: 20050729
  Transmission Date: 20061208
  Serious: Yes (Death)
  Sender: FDA-Public Use
  Company Number: 05P-163-0307421-00

PATIENT
  Age: 79 Year
  Sex: Female

DRUGS (2)
  1. K-TAB [Suspect]
     Dosage: 10 MILLIEQUIVALENTS, 1 IN 1 D
  2. SYNTHROID [Suspect]
     Dosage: 50 MCG, 1 IN 1 D

REACTIONS (1)
  - DEATH [None]
